FAERS Safety Report 24083819 (Version 1)
Quarter: 2024Q3

REPORT INFORMATION
  Report Type: Spontaneous
  Country: US (occurrence: None)
  Receive Date: 20240711
  Receipt Date: 20240711
  Transmission Date: 20241017
  Serious: Yes (Other)
  Sender: Public
  Company Number: None

PATIENT
  Age: 66 Year
  Sex: Male
  Weight: 126.1 kg

DRUGS (2)
  1. DEVICE [Suspect]
     Active Substance: DEVICE
  2. HEPARIN [Suspect]
     Active Substance: HEPARIN SODIUM

REACTIONS (3)
  - Medical device implantation [None]
  - Heparin-induced thrombocytopenia [None]
  - Product process control issue [None]

NARRATIVE: CASE EVENT DATE: 20240709
